FAERS Safety Report 16562719 (Version 4)
Quarter: 2019Q4

REPORT INFORMATION
  Report Type: Report from Study
  Country: CA (occurrence: CA)
  Receive Date: 20190711
  Receipt Date: 20191016
  Transmission Date: 20200122
  Serious: Yes (Hospitalization, Other)
  Sender: FDA-Public Use
  Company Number: CA-GLAXOSMITHKLINE-CA2019AMR121669

PATIENT
  Sex: Female

DRUGS (1)
  1. MEPOLIZUMAB [Suspect]
     Active Substance: MEPOLIZUMAB
     Indication: ASTHMA
     Dosage: 100 MG, Z, 1 MONTH
     Route: 042
     Dates: start: 20180517

REACTIONS (8)
  - Nasopharyngitis [Not Recovered/Not Resolved]
  - Cough [Not Recovered/Not Resolved]
  - Spinal compression fracture [Unknown]
  - Malaise [Unknown]
  - Herpes zoster [Unknown]
  - Fall [Unknown]
  - Hospitalisation [Unknown]
  - Productive cough [Unknown]
